FAERS Safety Report 14584762 (Version 1)
Quarter: 2018Q1

REPORT INFORMATION
  Report Type: Spontaneous
  Country: IT (occurrence: IT)
  Receive Date: 20180301
  Receipt Date: 20180301
  Transmission Date: 20180509
  Serious: Yes (Hospitalization)
  Sender: FDA-Public Use
  Company Number: IT-ACCORD-063889

PATIENT
  Age: 14 Year
  Sex: Female

DRUGS (2)
  1. MONTELUKAST [Suspect]
     Active Substance: MONTELUKAST SODIUM
  2. TARDYFER [Suspect]
     Active Substance: FERROUS SULFATE
     Dosage: 80 MG DAILY, PATIENT TOOK 10 TABLETS
     Route: 048

REACTIONS (2)
  - Intentional self-injury [Unknown]
  - Vomiting [Recovered/Resolved]

NARRATIVE: CASE EVENT DATE: 20170526
